FAERS Safety Report 9454877 (Version 2)
Quarter: 2014Q1

REPORT INFORMATION
  Report Type: Report from Study
  Country: BR (occurrence: BR)
  Receive Date: 20130813
  Receipt Date: 20140124
  Transmission Date: 20141002
  Serious: Yes (Hospitalization, Other)
  Sender: FDA-Public Use
  Company Number: BR-ROCHE-1259841

PATIENT
  Sex: Female
  Weight: 68 kg

DRUGS (8)
  1. ACTEMRA [Suspect]
     Indication: RHEUMATOID ARTHRITIS
     Route: 042
     Dates: start: 20130121, end: 2013
  2. ACTEMRA [Suspect]
     Dosage: MOST RECENT TOCILIZUMAB INFUSION WAS PERFORMED ON 01/AUG/2013
     Route: 065
     Dates: start: 2013
  3. LOSARTAN [Concomitant]
  4. AMLODIPINE [Concomitant]
  5. ATENOLOL [Concomitant]
  6. OMEPRAZOLE [Concomitant]
  7. FLANAX [Concomitant]
  8. SIMVASTATIN [Concomitant]

REACTIONS (8)
  - Hypertension [Unknown]
  - Back pain [Unknown]
  - Intervertebral disc protrusion [Unknown]
  - Tendon rupture [Unknown]
  - Fall [Unknown]
  - Drug ineffective [Unknown]
  - Bone pain [Unknown]
  - Gait disturbance [Unknown]
